FAERS Safety Report 23570768 (Version 1)
Quarter: 2024Q1

REPORT INFORMATION
  Report Type: Spontaneous
  Country: US (occurrence: US)
  Receive Date: 20240227
  Receipt Date: 20240227
  Transmission Date: 20240410
  Serious: Yes (Other)
  Sender: FDA-Public Use
  Company Number: US-PFIZER INC-PV202400026538

PATIENT
  Age: 66 Year
  Sex: Male

DRUGS (4)
  1. OXALIPLATIN [Suspect]
     Active Substance: OXALIPLATIN
     Indication: Bladder adenocarcinoma stage IV
     Dosage: 85 MG/M2, IV ON DAY 1
     Route: 042
  2. FLUOROURACIL [Concomitant]
     Active Substance: FLUOROURACIL
     Indication: Bladder adenocarcinoma stage IV
     Dosage: 400 MG/M2, IV BOLUS ON DAY 1
     Route: 040
  3. FLUOROURACIL [Concomitant]
     Active Substance: FLUOROURACIL
     Dosage: TOTAL DOSE OF 2,400 MG/M2 CONTINUOUS INFUSION OVER 46 HOURS ON DAYS 1 TO 2
     Route: 042
  4. LEUCOVORIN [Concomitant]
     Active Substance: LEUCOVORIN\LEUCOVORIN CALCIUM
     Indication: Bladder adenocarcinoma stage IV
     Dosage: 400 MG/M2, IV ON DAY 1
     Route: 042

REACTIONS (3)
  - Neuropathy peripheral [Unknown]
  - Nausea [Unknown]
  - Vomiting [Unknown]
